FAERS Safety Report 7414619-7 (Version None)
Quarter: 2011Q2

REPORT INFORMATION
  Report Type: 
  Country: None (occurrence: None)
  Receive Date: 20110411
  Receipt Date: 20110411
  Transmission Date: 20111010
  Serious: Yes (Hospitalization)
  Sender: FDA-Public Use
  Company Number: None

PATIENT
  Age: 42 Year
  Weight: 117.028 kg

DRUGS (17)
  1. ZIPRASIDONE HYDROCHLORIDE [Suspect]
     Indication: SCHIZOPHRENIA
     Dosage: 60MG BID; 80MG BID
     Dates: start: 20101018, end: 20101021
  2. ZIPRASIDONE HYDROCHLORIDE [Suspect]
     Indication: SCHIZOPHRENIA
     Dosage: 60MG BID; 80MG BID
     Dates: start: 20101021
  3. PROPRANOLOL [Concomitant]
  4. VITAMIN D [Concomitant]
  5. DOXEPIN [Concomitant]
  6. FLONASE [Concomitant]
  7. TRICOR [Concomitant]
  8. LORATADINE [Concomitant]
  9. ATARAX [Concomitant]
  10. HYDROCORTISONE [Concomitant]
  11. GEMFIBROZIL [Concomitant]
  12. BENADRYL [Concomitant]
  13. TOPAMAX [Concomitant]
  14. LAMICTAL [Concomitant]
  15. MOTRIN [Concomitant]
  16. DULERA TABLET [Concomitant]
  17. AMANTADINE HCL [Concomitant]

REACTIONS (1)
  - PHYSICAL ASSAULT [None]
